FAERS Safety Report 19242698 (Version 3)
Quarter: 2021Q3

REPORT INFORMATION
  Report Type: Report from Study
  Country: GB (occurrence: GB)
  Receive Date: 20210511
  Receipt Date: 20210708
  Transmission Date: 20211014
  Serious: Yes (Other)
  Sender: FDA-Public Use
  Company Number: GB-GLAXOSMITHKLINE-GB2021EME100757

PATIENT
  Sex: Female

DRUGS (2)
  1. MEPOLIZUMAB [Suspect]
     Active Substance: MEPOLIZUMAB
     Indication: PRODUCT USED FOR UNKNOWN INDICATION
     Dosage: 100 MG
     Dates: start: 202005
  2. ASTRAZENECA COVID?19 VACCINE [Suspect]
     Active Substance: AZD-1222
     Indication: PROPHYLAXIS
     Dosage: UNK

REACTIONS (10)
  - Malaise [Unknown]
  - Gait disturbance [Unknown]
  - Mental disorder [Unknown]
  - Hallucination [Unknown]
  - Drug ineffective [Unknown]
  - Memory impairment [Unknown]
  - Hypopnoea [Unknown]
  - Product dose omission issue [Unknown]
  - Somnolence [Unknown]
  - Muscular weakness [Unknown]
